FAERS Safety Report 4415401-5 (Version None)
Quarter: 2004Q2

REPORT INFORMATION
  Report Type: 
  Country: None (occurrence: None)
  Receive Date: 20040630
  Receipt Date: 20031209
  Transmission Date: 20050107
  Serious: Yes (Death)
  Sender: FDA-Public Use
  Company Number: 2003039476

PATIENT
  Age: 62 Year
  Sex: Male

DRUGS (3)
  1. ZOLOFT [Suspect]
     Indication: ILL-DEFINED DISORDER
     Dates: start: 20020523
  2. VENLAFAXINE HCL [Concomitant]
  3. SSRI (SSRI) [Concomitant]

REACTIONS (3)
  - AKATHISIA [None]
  - COMPLETED SUICIDE [None]
  - SLEEP DISORDER [None]
